FAERS Safety Report 7839037 (Version 8)
Quarter: 2013Q1

REPORT INFORMATION
  Report Type: Spontaneous
  Country: US (occurrence: US)
  Receive Date: 20110303
  Receipt Date: 20130327
  Transmission Date: 20140127
  Serious: Yes (Death, Other)
  Sender: FDA-Public Use
  Company Number: US-BAYER-2011-018421

PATIENT
  Age: 63 Year
  Sex: Female
  Weight: 50 kg

DRUGS (23)
  1. TRASYLOL [Suspect]
     Indication: DIALYSIS DEVICE INSERTION
     Dosage: 400 ML THEN 50ML/HR
     Route: 042
     Dates: start: 20060809, end: 20060809
  2. TRASYLOL [Suspect]
     Indication: MITRAL VALVE REPLACEMENT
  3. TRASYLOL [Suspect]
     Indication: MITRAL VALVE DISEASE MIXED
  4. HEPARIN [Concomitant]
     Indication: PRODUCT USED FOR UNKNOWN INDICATION
     Dosage: 20 ML, UNK
     Route: 042
     Dates: start: 20060809
  5. HEPARIN [Concomitant]
     Indication: PRODUCT USED FOR UNKNOWN INDICATION
     Dosage: 5000 UNITS EVERY 6 HOURS
     Route: 058
  6. ANCEF [Concomitant]
     Indication: PRODUCT USED FOR UNKNOWN INDICATION
     Dosage: 1 G, UNK
     Dates: start: 20060809
  7. PROTAMINE [Concomitant]
     Indication: PRODUCT USED FOR UNKNOWN INDICATION
     Dosage: 200 MG, UNK
     Route: 042
     Dates: start: 20060809
  8. ETOMIDATE [Concomitant]
     Indication: PRODUCT USED FOR UNKNOWN INDICATION
     Dosage: 10 MG, UNK
     Route: 042
     Dates: start: 20060809
  9. VERSED [Concomitant]
     Indication: PRODUCT USED FOR UNKNOWN INDICATION
     Dosage: 0.5 MG, UNK
     Route: 042
     Dates: start: 20060809
  10. MANNITOL [Concomitant]
     Indication: PRODUCT USED FOR UNKNOWN INDICATION
     Dosage: 25 G, UNK
     Route: 042
     Dates: start: 20060809
  11. INS [INSULIN] [Concomitant]
     Indication: PRODUCT USED FOR UNKNOWN INDICATION
     Dosage: 30 U, UNK
     Route: 042
     Dates: start: 20060809
  12. FORANE [Concomitant]
     Indication: PRODUCT USED FOR UNKNOWN INDICATION
     Dosage: UNK
     Dates: start: 20060809
  13. LIDOCAINE [Concomitant]
     Indication: PRODUCT USED FOR UNKNOWN INDICATION
     Dosage: 100 MG, UNK
     Route: 042
     Dates: start: 20060809
  14. CEFAZOLIN [Concomitant]
     Indication: PRODUCT USED FOR UNKNOWN INDICATION
     Dosage: 2 G, UNK
     Route: 042
     Dates: start: 20060809
  15. FENTANYL [Concomitant]
     Indication: PRODUCT USED FOR UNKNOWN INDICATION
     Dosage: 16 MG, UNK
     Route: 042
     Dates: start: 20060809
  16. NEOSYNEPHRINE [Concomitant]
     Indication: PRODUCT USED FOR UNKNOWN INDICATION
     Dosage: 100 MCG
     Route: 042
     Dates: start: 20060809
  17. METOPROLOL [Concomitant]
  18. WARFARIN [Concomitant]
     Dosage: 7.5 MG, QD
  19. LISINOPRIL [Concomitant]
     Dosage: 40 MG, UNK
  20. FUROSEMIDE [Concomitant]
  21. VERAPAMIL [Concomitant]
  22. HYDROXYZINE [Concomitant]
  23. ALBUMEN [Concomitant]

REACTIONS (10)
  - Death [Fatal]
  - Cardiac failure [Fatal]
  - Renal failure acute [Fatal]
  - Renal failure [Unknown]
  - Renal failure [Unknown]
  - Pain [Unknown]
  - Injury [Unknown]
  - Depression [Not Recovered/Not Resolved]
  - Emotional distress [Unknown]
  - Off label use [None]
